FAERS Safety Report 9858819 (Version 1)
Quarter: 2014Q1

REPORT INFORMATION
  Report Type: Spontaneous
  Country: US (occurrence: US)
  Receive Date: 20140131
  Receipt Date: 20140131
  Transmission Date: 20141002
  Serious: No
  Sender: FDA-Public Use
  Company Number: US-009507513-1401USA014797

PATIENT
  Age: 16 Year
  Sex: Female

DRUGS (1)
  1. MIRALAX [Suspect]
     Indication: CONSTIPATION
     Dosage: UNK, ONCE
     Route: 048

REACTIONS (4)
  - Overdose [Unknown]
  - Drug administered to patient of inappropriate age [Unknown]
  - Off label use [Unknown]
  - Drug ineffective [Unknown]
